FAERS Safety Report 21599751 (Version 1)
Quarter: 2022Q4

REPORT INFORMATION
  Report Type: Spontaneous
  Country: US (occurrence: US)
  Receive Date: 20221115
  Receipt Date: 20221115
  Transmission Date: 20230112
  Serious: No
  Sender: FDA-Public Use
  Company Number: US-MLMSERVICE-20221031-3884932-1

PATIENT
  Age: 26 Year
  Sex: Female

DRUGS (4)
  1. ELOCON [Suspect]
     Active Substance: MOMETASONE FUROATE
     Indication: Folliculitis
     Dosage: UNK
  2. CLINDAMYCIN [Suspect]
     Active Substance: CLINDAMYCIN
     Indication: Folliculitis
     Dosage: UNK
  3. ALCLOMETASONE [Suspect]
     Active Substance: ALCLOMETASONE
     Indication: Dermatitis contact
     Dosage: UNK
  4. CLOBETASOL [Suspect]
     Active Substance: CLOBETASOL
     Indication: Dermatitis contact
     Dosage: UNK
     Route: 061

REACTIONS (2)
  - Tinea infection [Recovered/Resolved]
  - Product use in unapproved indication [Unknown]
